FAERS Safety Report 8819972 (Version 3)
Quarter: 2012Q4

REPORT INFORMATION
  Report Type: 
  Country: US (occurrence: US)
  Receive Date: 20121001
  Receipt Date: 20121116
  Transmission Date: 20130627
  Serious: No
  Sender: FDA-Public Use
  Company Number: US-PFIZER INC-2012241804

PATIENT
  Age: 89 Year
  Sex: Female
  Weight: 53.5 kg

DRUGS (2)
  1. CELEBREX [Suspect]
     Indication: LIMB DISCOMFORT
     Dosage: 200 mg, 1x/day
     Route: 048
     Dates: start: 20120723, end: 201207
  2. CELEBREX [Suspect]
     Indication: PAIN IN KNEE

REACTIONS (11)
  - Limb discomfort [Recovering/Resolving]
  - Drug ineffective [Unknown]
  - Burning sensation [Recovered/Resolved]
  - Oedema peripheral [Recovered/Resolved]
  - Pruritus [Recovered/Resolved]
  - Sensation of heaviness [Recovered/Resolved]
  - Balance disorder [Recovered/Resolved]
  - Feeling abnormal [Recovered/Resolved]
  - Gait disturbance [Recovered/Resolved]
  - Malaise [Recovered/Resolved]
  - Hypoaesthesia [Recovered/Resolved]
